FAERS Safety Report 8840432 (Version 2)
Quarter: 2012Q4

REPORT INFORMATION
  Report Type: 
  Country: US (occurrence: US)
  Receive Date: 20121015
  Receipt Date: 20121114
  Transmission Date: 20130627
  Serious: Yes (Other)
  Sender: FDA-Public Use
  Company Number: US-PFIZER INC-2012254557

PATIENT
  Sex: Female
  Weight: 101 kg

DRUGS (7)
  1. LYRICA [Suspect]
     Indication: FIBROMYALGIA
     Dosage: 75 mg, daily
     Route: 048
  2. LYRICA [Suspect]
     Indication: PAIN
     Dosage: 150 mg, 3x/day
     Route: 048
  3. LYRICA [Suspect]
     Indication: NEUROPATHY PERIPHERAL
  4. MAXZIDE [Concomitant]
     Indication: BLOOD PRESSURE HIGH
     Dosage: 25 mg, daily
  5. LISINOPRIL [Concomitant]
     Indication: BLOOD PRESSURE HIGH
     Dosage: 10 mg, daily
  6. VICODIN [Concomitant]
     Indication: BACK PAIN
     Dosage: UNK, daily
  7. VICODIN [Concomitant]
     Indication: ARTHRITIS

REACTIONS (6)
  - Polymyalgia rheumatica [Unknown]
  - Drug ineffective [Unknown]
  - Gait disturbance [Unknown]
  - Drug withdrawal syndrome [Recovered/Resolved]
  - Pyrexia [Recovered/Resolved]
  - Chills [Recovered/Resolved]
